FAERS Safety Report 7502130-4 (Version None)
Quarter: 2011Q2

REPORT INFORMATION
  Report Type: 
  Country: None (occurrence: None)
  Receive Date: 20110525
  Receipt Date: 20110519
  Transmission Date: 20111010
  Serious: Yes (Other)
  Sender: FDA-Public Use
  Company Number: US-PFIZER INC-2011013240

PATIENT
  Sex: Male

DRUGS (2)
  1. SUTENT [Suspect]
     Dosage: 12.5 MG, 3X/DAY X 28 DAYS Q 42 DAYS
     Dates: start: 20110407
  2. SUTENT [Suspect]
     Indication: METASTATIC RENAL CELL CARCINOMA
     Dosage: 50 MG, 1X/DAY X 28 DAYS Q 42 DAYS
     Route: 048
     Dates: start: 20110111

REACTIONS (17)
  - FATIGUE [None]
  - BLOOD MAGNESIUM DECREASED [None]
  - CARDIAC MURMUR [None]
  - GASTROOESOPHAGEAL REFLUX DISEASE [None]
  - VOMITING [None]
  - DIARRHOEA [None]
  - PULMONARY OEDEMA [None]
  - DRY MOUTH [None]
  - CONVULSION [None]
  - SKIN EXFOLIATION [None]
  - BLOOD PRESSURE DECREASED [None]
  - DYSPNOEA [None]
  - LOSS OF CONSCIOUSNESS [None]
  - SKIN DISCOLOURATION [None]
  - EYELASH DISCOLOURATION [None]
  - NAUSEA [None]
  - HYPERKERATOSIS [None]
